FAERS Safety Report 16833096 (Version 1)
Quarter: 2019Q3

REPORT INFORMATION
  Report Type: Spontaneous
  Country: FR (occurrence: FR)
  Receive Date: 20190920
  Receipt Date: 20190920
  Transmission Date: 20191005
  Serious: Yes (Other)
  Sender: FDA-Public Use
  Company Number: FR-MYLANLABS-2019M1086967

PATIENT
  Sex: Female

DRUGS (2)
  1. BEVACIZUMAB. [Suspect]
     Active Substance: BEVACIZUMAB
     Indication: TRIPLE NEGATIVE BREAST CANCER
     Dosage: ON DAYS 1 AND 15 OF CYCLE
     Route: 065
  2. PACLITAXEL MYLAN [Suspect]
     Active Substance: PACLITAXEL
     Indication: TRIPLE NEGATIVE BREAST CANCER
     Dosage: ON DAYS 1, 8, AND 15 WITH A BREAK ON DAY 21
     Route: 065

REACTIONS (2)
  - Colitis [Unknown]
  - Sepsis [Unknown]
